FAERS Safety Report 9833565 (Version 1)
Quarter: 2014Q1

REPORT INFORMATION
  Report Type: Spontaneous
  Country: US (occurrence: US)
  Receive Date: 20140122
  Receipt Date: 20140122
  Transmission Date: 20141002
  Serious: Yes (Other)
  Sender: FDA-Public Use
  Company Number: ALCN2014US000605

PATIENT
  Age: 95 Year
  Sex: Female

DRUGS (9)
  1. SIMBRINZA [Suspect]
     Dosage: UNK
     Dates: start: 201312
  2. ILEVRO [Suspect]
     Dosage: UNK
     Route: 047
     Dates: end: 20131224
  3. ILEVRO [Suspect]
     Dosage: UNK
     Route: 047
     Dates: start: 20131231
  4. LUMIGAN [Concomitant]
     Indication: INTRAOCULAR PRESSURE INCREASED
     Dosage: UNK
     Dates: start: 201312
  5. ALPHAGAN-P [Concomitant]
     Indication: INTRAOCULAR PRESSURE INCREASED
     Dosage: 1 GTT, TID
     Route: 047
     Dates: start: 201312
  6. CARTIA                                  /USA/ [Concomitant]
     Indication: ATRIAL FIBRILLATION
     Dosage: UNK
  7. FUROSEMIDE [Concomitant]
     Indication: DIURETIC THERAPY
     Dosage: UNK
  8. LANOXIN [Concomitant]
     Indication: ATRIAL FIBRILLATION
     Dosage: UNK
  9. POTASSIUM [Concomitant]
     Indication: ELECTROLYTE SUBSTITUTION THERAPY
     Dosage: UNK

REACTIONS (2)
  - Heart rate decreased [Unknown]
  - Eye irritation [Unknown]
